FAERS Safety Report 8218263-3 (Version None)
Quarter: 2012Q1

REPORT INFORMATION
  Report Type: 
  Country: None (occurrence: None)
  Receive Date: 20120319
  Receipt Date: 20120306
  Transmission Date: 20120608
  Serious: No
  Sender: FDA-Public Use
  Company Number: US-ELI_LILLY_AND_COMPANY-US201110007830

PATIENT
  Sex: Female

DRUGS (10)
  1. FORTEO [Suspect]
     Indication: OSTEOPOROSIS
     Dosage: 20 UG, QD
     Route: 065
     Dates: start: 20111019
  2. MIRALAX [Concomitant]
  3. FORTEO [Suspect]
     Dosage: 20 UG, QD
     Route: 065
  4. FORTEO [Suspect]
     Dosage: 20 UG, QD
     Route: 065
  5. OXYCONTIN [Concomitant]
     Dosage: 10 MG, QD
  6. LUNESTA [Concomitant]
  7. FORTEO [Suspect]
     Dosage: 20 UG, QD
     Route: 065
  8. FORTEO [Suspect]
     Dosage: 20 UG, QD
     Route: 065
  9. OXYCONTIN [Concomitant]
     Indication: BREAKTHROUGH PAIN
     Dosage: 20 MG, QD
  10. ANALGESICS [Concomitant]
     Indication: PAIN

REACTIONS (10)
  - BREAKTHROUGH PAIN [None]
  - ASTHENIA [None]
  - MALAISE [None]
  - FATIGUE [None]
  - FEELING ABNORMAL [None]
  - IRRITABILITY [None]
  - HEADACHE [None]
  - FEELING OF BODY TEMPERATURE CHANGE [None]
  - BONE PAIN [None]
  - DYSPNOEA [None]
